FAERS Safety Report 4949489-X (Version None)
Quarter: 2006Q1

REPORT INFORMATION
  Report Type: 
  Country: None (occurrence: None)
  Receive Date: 20060321
  Receipt Date: 20031210
  Transmission Date: 20060701
  Serious: Yes (Hospitalization, Disabling)
  Sender: FDA-Public Use
  Company Number: GBWYE455510DEC03

PATIENT
  Sex: Female

DRUGS (7)
  1. ENBREL [Suspect]
     Indication: RHEUMATOID ARTHRITIS
     Route: 058
     Dates: start: 20030417, end: 20030429
  2. PREDNISOLONE [Concomitant]
  3. AMLODIPINE [Concomitant]
  4. BENDROFLUAZIDE [Concomitant]
  5. PANTOPRAZOLE [Concomitant]
  6. FENBUFEN [Concomitant]
  7. CO-PROXAMOL [Concomitant]

REACTIONS (9)
  - ASTHENIA [None]
  - BALANCE DISORDER [None]
  - DIZZINESS [None]
  - HYPOAESTHESIA [None]
  - MOBILITY DECREASED [None]
  - OCULAR TOXICITY [None]
  - PARAESTHESIA [None]
  - RETINAL DISORDER [None]
  - VISUAL FIELD DEFECT [None]
